FAERS Safety Report 23848798 (Version 1)
Quarter: 2024Q2

REPORT INFORMATION
  Report Type: Spontaneous
  Country: US (occurrence: None)
  Receive Date: 20240510
  Receipt Date: 20240510
  Transmission Date: 20240716
  Serious: Yes (Life-Threatening, Hospitalization, Disabling)
  Sender: FDA-Public Use
  Company Number: None

PATIENT
  Age: 72 Year
  Sex: Female
  Weight: 49.5 kg

DRUGS (7)
  1. PROLIA [Suspect]
     Active Substance: DENOSUMAB
     Dosage: OTHER FREQUENCY : EVERY 6 MONTHS;?
     Route: 058
  2. WELCHOL [Concomitant]
     Active Substance: COLESEVELAM HYDROCHLORIDE
  3. centrum silver vitamins [Concomitant]
  4. citracal with D3 [Concomitant]
  5. POTASSIUM [Concomitant]
     Active Substance: POTASSIUM
  6. FOLIC ACID [Concomitant]
     Active Substance: FOLIC ACID
  7. KRILL OIL [Concomitant]
     Active Substance: DIETARY SUPPLEMENT\KRILL OIL

REACTIONS (3)
  - Pathological fracture [None]
  - Femur fracture [None]
  - Fracture displacement [None]

NARRATIVE: CASE EVENT DATE: 20240417
